FAERS Safety Report 9607355 (Version 1)
Quarter: 2013Q4

REPORT INFORMATION
  Report Type: Spontaneous
  Country: US (occurrence: None)
  Receive Date: 20131004
  Receipt Date: 20131004
  Transmission Date: 20140711
  Serious: Yes (Disabling, Other)
  Sender: FDA-Public Use
  Company Number: 1309-1228

PATIENT
  Age: 94 Year
  Sex: Male

DRUGS (4)
  1. EYLEA [Suspect]
     Indication: AGE-RELATED MACULAR DEGENERATION
     Dosage: 2 MG, INTRAVITREAL
     Dates: start: 20120808, end: 20130911
  2. VITAMIN D (ERGOCALCIFEROL) [Concomitant]
  3. VITAMIN C [Concomitant]
  4. LUTEIN (XANTOPYL) [Concomitant]

REACTIONS (1)
  - Uveitis [None]
